FAERS Safety Report 4960522-1 (Version None)
Quarter: 2006Q2

REPORT INFORMATION
  Report Type: 
  Country: None (occurrence: None)
  Receive Date: 20060403
  Receipt Date: 20060324
  Transmission Date: 20061013
  Serious: Yes (Hospitalization)
  Sender: FDA-Public Use
  Company Number: US-JNJFOC-20060302004

PATIENT
  Sex: Female
  Weight: 83.92 kg

DRUGS (8)
  1. DURAGESIC-100 [Suspect]
     Route: 062
  2. DURAGESIC-100 [Suspect]
     Route: 062
  3. DURAGESIC-100 [Suspect]
     Route: 062
  4. DURAGESIC-100 [Suspect]
     Route: 062
  5. PRIMIDONE [Concomitant]
  6. CYMBALTA [Concomitant]
  7. PROPRANOLOL [Concomitant]
  8. LEVOXYL [Concomitant]
     Indication: HYPOTHYROIDISM

REACTIONS (8)
  - ANOREXIA [None]
  - ASTHENIA [None]
  - EMPHYSEMA [None]
  - FEELING COLD [None]
  - HYPERHIDROSIS [None]
  - INAPPROPRIATE SCHEDULE OF DRUG ADMINISTRATION [None]
  - VISUAL DISTURBANCE [None]
  - WEIGHT DECREASED [None]
